FAERS Safety Report 8492990-5 (Version None)
Quarter: 2012Q3

REPORT INFORMATION
  Report Type: 
  Country: None (occurrence: None)
  Receive Date: 20120706
  Receipt Date: 20120702
  Transmission Date: 20120928
  Serious: Yes (Life-Threatening, Hospitalization)
  Sender: FDA-Public Use
  Company Number: GB-JNJFOC-20120701459

PATIENT
  Age: 34 Year
  Sex: Male

DRUGS (7)
  1. IBUPROFEN [Concomitant]
     Indication: MYALGIA
     Route: 048
  2. ALBUTEROL SULATE [Concomitant]
     Indication: ASTHMA
     Route: 055
  3. NOZINAN [Concomitant]
     Indication: PRODUCT USED FOR UNKNOWN INDICATION
     Route: 048
  4. ARIPIPRAZOLE [Concomitant]
     Indication: SCHIZOPHRENIA
     Route: 048
     Dates: start: 20120326, end: 20120527
  5. OLANZAPINE [Concomitant]
     Indication: SCHIZOPHRENIA
     Route: 048
     Dates: start: 20120123, end: 20120325
  6. TETRALYSAL [Concomitant]
     Indication: ACNE
     Route: 048
  7. RISPERIDONE [Suspect]
     Indication: SCHIZOPHRENIA
     Route: 048
     Dates: start: 20120528

REACTIONS (1)
  - PULMONARY EMBOLISM [None]
